FAERS Safety Report 19459442 (Version 1)
Quarter: 2021Q2

REPORT INFORMATION
  Report Type: Spontaneous
  Country: US (occurrence: US)
  Receive Date: 20210624
  Receipt Date: 20210624
  Transmission Date: 20210717
  Serious: No
  Sender: FDA-Public Use
  Company Number: US-ORGANON-O2106USA000933

PATIENT
  Age: 72 Year
  Sex: Female

DRUGS (4)
  1. DIPROLENE AF [Suspect]
     Active Substance: BETAMETHASONE DIPROPIONATE
     Indication: PITYRIASIS RUBRA PILARIS
     Dosage: UNK
     Route: 061
  2. UREA. [Concomitant]
     Active Substance: UREA
     Indication: PITYRIASIS RUBRA PILARIS
     Dosage: UNK
     Route: 061
  3. DECITABINE. [Concomitant]
     Active Substance: DECITABINE
     Dosage: SECOND CYCLICAL
  4. DECITABINE. [Concomitant]
     Active Substance: DECITABINE
     Indication: MYELODYSPLASTIC SYNDROME
     Dosage: FIRST CYCLICAL

REACTIONS (1)
  - Product use in unapproved indication [Unknown]
